FAERS Safety Report 6910496-9 (Version None)
Quarter: 2010Q3

REPORT INFORMATION
  Report Type: 
  Country: None (occurrence: None)
  Receive Date: 20100806
  Receipt Date: 20100726
  Transmission Date: 20110219
  Serious: Yes (Hospitalization, Other)
  Sender: FDA-Public Use
  Company Number: PHEH2006US12237

PATIENT
  Sex: Female
  Weight: 102.49 kg

DRUGS (15)
  1. AREDIA [Suspect]
     Indication: BREAST CANCER
     Dosage: 60MG UNK
  2. ZOMETA [Suspect]
     Indication: METASTASES TO BONE
     Dosage: 2MG IN 100CC NS
  3. NPH INSULIN [Concomitant]
  4. AVANDIA [Concomitant]
  5. BACTRIM [Concomitant]
  6. ASPIRIN [Concomitant]
  7. TOPROL-XL [Concomitant]
  8. XALATAN [Concomitant]
  9. FEMARA [Concomitant]
  10. ALTACE [Concomitant]
  11. M.V.I. [Concomitant]
  12. MOTRIN [Concomitant]
  13. PERCOCET [Concomitant]
  14. OXYCODONE [Concomitant]
  15. ACETAMINOPHEN [Concomitant]

REACTIONS (39)
  - ABSCESS [None]
  - ALVEOLOPLASTY [None]
  - ANXIETY [None]
  - ARTHRALGIA [None]
  - ASTHENIA [None]
  - ATRIAL FIBRILLATION [None]
  - BONE DEBRIDEMENT [None]
  - BONE DISORDER [None]
  - BONE MARROW OEDEMA [None]
  - COUGH [None]
  - DECREASED INTEREST [None]
  - DEFORMITY [None]
  - EMOTIONAL DISTRESS [None]
  - GAIT DISTURBANCE [None]
  - HYPOPHAGIA [None]
  - HYPOTONIA [None]
  - IMPAIRED HEALING [None]
  - INFECTION [None]
  - INFLAMMATION [None]
  - INJURY [None]
  - INTERNATIONAL NORMALISED RATIO INCREASED [None]
  - LIFE EXPECTANCY SHORTENED [None]
  - MYOSITIS [None]
  - OEDEMA PERIPHERAL [None]
  - OSTEOMYELITIS [None]
  - OSTEONECROSIS OF JAW [None]
  - PAIN [None]
  - PHYSICAL DISABILITY [None]
  - PRIMARY SEQUESTRUM [None]
  - PROTHROMBIN TIME PROLONGED [None]
  - PURULENT DISCHARGE [None]
  - RENAL FAILURE [None]
  - TACHYCARDIA [None]
  - TENDONITIS [None]
  - TOOTH EXTRACTION [None]
  - TRANSIENT ISCHAEMIC ATTACK [None]
  - UNRESPONSIVE TO STIMULI [None]
  - URINARY TRACT INFECTION [None]
  - VOMITING [None]
